FAERS Safety Report 4302603-1 (Version None)
Quarter: 2004Q1

REPORT INFORMATION
  Report Type: 
  Country: None (occurrence: None)
  Receive Date: 20040218
  Receipt Date: 20030228
  Transmission Date: 20041129
  Serious: Yes (Hospitalization)
  Sender: FDA-Public Use
  Company Number: 8000940

PATIENT
  Age: 38 Year
  Sex: Female
  Weight: 115 kg

DRUGS (5)
  1. KEPPRA [Suspect]
     Indication: CONVULSION
     Dosage: 2/D PO
     Route: 048
     Dates: end: 20030130
  2. DEPAKOTE [Concomitant]
  3. KLONOPIN [Concomitant]
  4. ANTIDEPRESSANT [Concomitant]
  5. ANALGESIC [Concomitant]

REACTIONS (2)
  - DEPRESSION [None]
  - SUICIDAL IDEATION [None]
